FAERS Safety Report 24094165 (Version 2)
Quarter: 2024Q3

REPORT INFORMATION
  Report Type: Spontaneous
  Country: US (occurrence: US)
  Receive Date: 20240716
  Receipt Date: 20240801
  Transmission Date: 20241017
  Serious: No
  Sender: ABBVIE
  Company Number: US-ABBVIE-5840072

PATIENT
  Sex: Female

DRUGS (2)
  1. BOTOX COSMETIC [Suspect]
     Active Substance: ONABOTULINUMTOXINA
     Indication: Product used for unknown indication
     Dosage: TIME INTERVAL: AS NECESSARY: START DATE TEXT: 10 YEARS AGO?FREQUENCY TEXT: MAYBE ONCE EVERY 9-10 ...
     Route: 030
  2. BOTOX COSMETIC [Suspect]
     Active Substance: ONABOTULINUMTOXINA
     Indication: Product used for unknown indication
     Dosage: TIME INTERVAL: AS NECESSARY
     Route: 030
     Dates: start: 20240419, end: 20240419

REACTIONS (6)
  - Malaise [Unknown]
  - Unevaluable event [Unknown]
  - Periorbital swelling [Unknown]
  - Trismus [Unknown]
  - Rash papular [Unknown]
  - Nodule [Unknown]

NARRATIVE: CASE EVENT DATE: 20240101
